FAERS Safety Report 8788072 (Version 2)
Quarter: 2012Q4

REPORT INFORMATION
  Report Type: 
  Country: US (occurrence: US)
  Receive Date: 20120914
  Receipt Date: 20121005
  Transmission Date: 20130627
  Serious: Yes (Death, Hospitalization)
  Sender: FDA-Public Use
  Company Number: PHEH2012US017764

PATIENT
  Sex: Male

DRUGS (2)
  1. RECLAST [Suspect]
     Indication: SENILE OSTEOPOROSIS
     Dosage: 5 mg, annual
     Route: 042
     Dates: start: 201101
  2. RECLAST [Suspect]
     Dosage: 5 mg, annual
     Route: 042
     Dates: start: 201201

REACTIONS (15)
  - Pyelonephritis [Fatal]
  - Urinary tract infection [Fatal]
  - Sepsis [Fatal]
  - Malnutrition [Unknown]
  - Generalised oedema [Unknown]
  - Blood albumin decreased [Unknown]
  - Pleural effusion [Unknown]
  - Abscess [Unknown]
  - Localised intraabdominal fluid collection [Unknown]
  - Anastomotic leak [Not Recovered/Not Resolved]
  - Tachycardia [Not Recovered/Not Resolved]
  - Failure to thrive [Not Recovered/Not Resolved]
  - Aphagia [Not Recovered/Not Resolved]
  - Nausea [Not Recovered/Not Resolved]
  - Vomiting [Not Recovered/Not Resolved]
